FAERS Safety Report 17913203 (Version 1)
Quarter: 2020Q2

REPORT INFORMATION
  Report Type: Spontaneous
  Country: ES (occurrence: ES)
  Receive Date: 20200618
  Receipt Date: 20200618
  Transmission Date: 20200714
  Serious: Yes (Other)
  Sender: FDA-Public Use
  Company Number: ES-TEVA-2020-ES-1788019

PATIENT
  Age: 27 Year
  Sex: Female

DRUGS (1)
  1. COPAXONE [Suspect]
     Active Substance: GLATIRAMER ACETATE
     Indication: MULTIPLE SCLEROSIS
     Route: 058

REACTIONS (9)
  - Injection site discolouration [Not Recovered/Not Resolved]
  - Injection site atrophy [Unknown]
  - Injection site necrosis [Unknown]
  - Injection site mass [Unknown]
  - Injection site atrophy [Not Recovered/Not Resolved]
  - Needle fatigue [Unknown]
  - Injection site induration [Not Recovered/Not Resolved]
  - Injection site indentation [Unknown]
  - Injection site injury [Unknown]
